FAERS Safety Report 9734454 (Version 1)
Quarter: 2013Q4

REPORT INFORMATION
  Report Type: Spontaneous
  Country: FR (occurrence: FR)
  Receive Date: 20131206
  Receipt Date: 20131206
  Transmission Date: 20140711
  Serious: Yes (Hospitalization)
  Sender: FDA-Public Use
  Company Number: FR-ROCHE-1314836

PATIENT
  Age: 80 Year
  Sex: Male

DRUGS (14)
  1. ROCEPHINE [Suspect]
     Indication: ENDOCARDITIS
     Route: 030
     Dates: start: 20131103, end: 20131109
  2. CLAMOXYL (FRANCE) [Suspect]
     Indication: ENDOCARDITIS
     Route: 042
     Dates: start: 20131028
  3. CLAMOXYL (FRANCE) [Suspect]
     Route: 042
     Dates: end: 20131109
  4. GENTAMICIN [Concomitant]
     Indication: ENDOCARDITIS
     Route: 042
     Dates: start: 20131028, end: 20131103
  5. BISOCE [Concomitant]
  6. BRILIQUE [Concomitant]
  7. DAFALGAN [Concomitant]
  8. FUMAFER [Concomitant]
  9. GABAPENTIN [Concomitant]
  10. KARDEGIC [Concomitant]
  11. LASILIX [Concomitant]
  12. SPECIAFOLDINE [Concomitant]
  13. TAHOR [Concomitant]
  14. XATRAL [Concomitant]

REACTIONS (1)
  - Encephalopathy [Recovering/Resolving]
